FAERS Safety Report 4654964-1 (Version None)
Quarter: 2005Q2

REPORT INFORMATION
  Report Type: 
  Country: None (occurrence: None)
  Receive Date: 20050504
  Receipt Date: 20050426
  Transmission Date: 20051028
  Serious: Yes (Life-Threatening, Hospitalization)
  Sender: FDA-Public Use
  Company Number: 2005066236

PATIENT
  Age: 44 Year
  Sex: Male

DRUGS (1)
  1. TOTALIP (ATORVASTATIN) [Suspect]
     Indication: TYPE IIA HYPERLIPIDAEMIA
     Dosage: 20 MG (20 MG, 1 IN 1 D), ORAL
     Route: 048
     Dates: start: 20030407, end: 20050414

REACTIONS (2)
  - GLUCOSE TOLERANCE IMPAIRED [None]
  - PULMONARY EMBOLISM [None]
